FAERS Safety Report 4516163-3 (Version None)
Quarter: 2004Q4

REPORT INFORMATION
  Report Type: 
  Country: None (occurrence: None)
  Receive Date: 20041201
  Receipt Date: 20041201
  Transmission Date: 20050328
  Serious: Yes (Other)
  Sender: FDA-Public Use
  Company Number: None

PATIENT

DRUGS (1)
  1. SUN TUSSIN SUGAR FREE DISTRIBUTED BY MCKESSON [Suspect]

REACTIONS (1)
  - MEDICATION ERROR [None]
